FAERS Safety Report 11080869 (Version 1)
Quarter: 2015Q2

REPORT INFORMATION
  Report Type: Spontaneous
  Country: US (occurrence: None)
  Receive Date: 20150430
  Receipt Date: 20150430
  Transmission Date: 20150821
  Serious: Yes (Other)
  Sender: FDA-Public Use
  Company Number: None

PATIENT
  Age: 85 Year
  Sex: Female
  Weight: 56.7 kg

DRUGS (9)
  1. SIMVASTATIN. [Concomitant]
     Active Substance: SIMVASTATIN
  2. PROLIA [Suspect]
     Active Substance: DENOSUMAB
     Indication: OSTEOPOROSIS
     Route: 030
     Dates: start: 20150331, end: 20150429
  3. OMEGA [Concomitant]
     Active Substance: CONVALLARIA MAJALIS\CRATAEGUS LAEVIGATA LEAF\PROXYPHYLLINE
  4. AMLODIPINE [Concomitant]
     Active Substance: AMLODIPINE BESYLATE
  5. FAMOTIDINE. [Concomitant]
     Active Substance: FAMOTIDINE
  6. HYDROCHOLOROTHIAZINE [Concomitant]
  7. ELIQUIS [Concomitant]
     Active Substance: APIXABAN
  8. CALCIUM [Concomitant]
     Active Substance: CALCIUM
  9. METOPROLOL [Concomitant]
     Active Substance: METOPROLOL

REACTIONS (8)
  - Myalgia [None]
  - Back pain [None]
  - Pain in extremity [None]
  - Insomnia [None]
  - Arthralgia [None]
  - Pain [None]
  - Mental impairment [None]
  - Bone pain [None]

NARRATIVE: CASE EVENT DATE: 20150331
